FAERS Safety Report 4283046-6 (Version None)
Quarter: 2004Q1

REPORT INFORMATION
  Report Type: 
  Country: None (occurrence: None)
  Receive Date: 20040129
  Receipt Date: 20040120
  Transmission Date: 20041129
  Serious: Yes (Death, Life-Threatening, Other)
  Sender: FDA-Public Use
  Company Number: 2003-12-1091

PATIENT
  Age: 53 Year
  Sex: Male
  Weight: 71 kg

DRUGS (16)
  1. PEG-INTRON [Suspect]
     Indication: HEPATITIS C
     Dosage: 74; 60.8 MCG QWK SUBCUTANEOUS
     Route: 058
     Dates: start: 20030326, end: 20031105
  2. PEG-INTRON [Suspect]
     Indication: HEPATITIS C
     Dosage: 74; 60.8 MCG QWK SUBCUTANEOUS
     Route: 058
     Dates: start: 20031106, end: 20031203
  3. REBETOL [Suspect]
     Indication: HEPATITIS C
     Dosage: 1000; 800 MG QD ORAL
     Route: 048
     Dates: start: 20030326, end: 20031105
  4. REBETOL [Suspect]
     Indication: HEPATITIS C
     Dosage: 1000; 800 MG QD ORAL
     Route: 048
     Dates: start: 20031106, end: 20031201
  5. EPOGEN [Concomitant]
  6. ACETAMINOPHEN W/OXYCODONE TABLETS [Concomitant]
  7. TESTOSTERONE CIPIONATE INJECTABLE [Concomitant]
  8. STAVUDINE (DIDEHYDROTHYMIDINE) CAPSULES [Concomitant]
  9. RITONAVIR CAPSULES [Concomitant]
  10. NORTRIPTYLINE HCL [Concomitant]
  11. MULTI-VITAMINS [Concomitant]
  12. INDINAVIR SULFATE CAPSULES [Concomitant]
  13. FERROUS SULFATE TABLETS [Concomitant]
  14. BACITRACIN OPHTHALMIC OINTMENT [Concomitant]
  15. ARTIFICIAL TEARS OPHTHALMIC SOLUTION [Concomitant]
  16. FOLIC ACID [Concomitant]

REACTIONS (16)
  - ANOREXIA [None]
  - ASTHENIA [None]
  - BLOOD CHLORIDE DECREASED [None]
  - BLOOD CHLORIDE INCREASED [None]
  - BLOOD POTASSIUM INCREASED [None]
  - BLOOD SODIUM DECREASED [None]
  - DEHYDRATION [None]
  - DYSSTASIA [None]
  - HAEMATOCRIT DECREASED [None]
  - HAEMOGLOBIN DECREASED [None]
  - PCO2 DECREASED [None]
  - PLATELET COUNT DECREASED [None]
  - REFUSAL OF TREATMENT BY PATIENT [None]
  - RENAL FAILURE [None]
  - TREATMENT NONCOMPLIANCE [None]
  - WEIGHT DECREASED [None]
